FAERS Safety Report 6278739-5 (Version None)
Quarter: 2009Q3

REPORT INFORMATION
  Report Type: 
  Country: None (occurrence: None)
  Receive Date: 20090721
  Receipt Date: 20090710
  Transmission Date: 20100115
  Serious: Yes (Hospitalization, Other)
  Sender: FDA-Public Use
  Company Number: 2008AL009655

PATIENT
  Age: 56 Year
  Sex: Female
  Weight: 117.028 kg

DRUGS (23)
  1. DIGOXIN [Suspect]
     Dosage: 0.25MG, DAILY, PO
     Route: 048
  2. PLAVIX [Concomitant]
  3. ISORDIL [Concomitant]
  4. GLYBURIDE [Concomitant]
  5. METFORMIN [Concomitant]
  6. LASIX [Concomitant]
  7. LABETOLOL [Concomitant]
  8. IRON SULFATETHIAMIN COMPOUND TAB [Concomitant]
  9. VYTORIN [Concomitant]
  10. CLONIDINE [Concomitant]
  11. BENICAR [Concomitant]
  12. METOLAZONE [Concomitant]
  13. TAZTIA [Concomitant]
  14. HYDRALAZINE HCL [Concomitant]
  15. COUMADIN [Concomitant]
  16. POTASSIUM CHLORIDE [Concomitant]
  17. PACERONE [Concomitant]
  18. DILTIAZEM [Concomitant]
  19. ASPIRIN [Concomitant]
  20. FELODIPINE [Concomitant]
  21. PROPYL-THIOURACIL [Concomitant]
  22. BENAZEPRIL HYDROCHLORIDE [Concomitant]
  23. ISOSORBIDE [Concomitant]

REACTIONS (16)
  - ANAEMIA [None]
  - ANHEDONIA [None]
  - ANXIETY [None]
  - ATRIOVENTRICULAR BLOCK COMPLETE [None]
  - BRADYCARDIA [None]
  - CORONARY ARTERY DISEASE [None]
  - DIARRHOEA [None]
  - HYPERTENSION [None]
  - MICROALBUMINURIA [None]
  - MULTIPLE INJURIES [None]
  - NAUSEA [None]
  - PAIN [None]
  - RENAL INJURY [None]
  - SYNCOPE [None]
  - THERAPEUTIC AGENT TOXICITY [None]
  - VOMITING [None]
